FAERS Safety Report 17142397 (Version 3)
Quarter: 2020Q1

REPORT INFORMATION
  Report Type: Report from Study
  Country: US (occurrence: US)
  Receive Date: 20191211
  Receipt Date: 20200131
  Transmission Date: 20200409
  Serious: Yes (Life-Threatening, Hospitalization, Other)
  Sender: FDA-Public Use
  Company Number: US-JNJFOC-20191209094

PATIENT
  Age: 31 Year
  Sex: Male
  Weight: 129.28 kg

DRUGS (8)
  1. LEVOMILNACIPRAN [Concomitant]
     Active Substance: LEVOMILNACIPRAN
  2. BUPROPION HYDROCHLORIDE XL [Concomitant]
     Active Substance: BUPROPION HYDROCHLORIDE
  3. QUETIAPINE. [Concomitant]
     Active Substance: QUETIAPINE
     Dosage: AT BEDTIME
  4. XARELTO [Concomitant]
     Active Substance: RIVAROXABAN
     Indication: ANTIPHOSPHOLIPID SYNDROME
  5. NORTRIPTYLINE [Concomitant]
     Active Substance: NORTRIPTYLINE
     Indication: MAJOR DEPRESSION
  6. SPRAVATO [Suspect]
     Active Substance: ESKETAMINE
     Indication: DEPRESSION
     Dates: start: 20191119, end: 20191126
  7. PROPRANOLOL [Concomitant]
     Active Substance: PROPRANOLOL HYDROCHLORIDE
     Indication: MAJOR DEPRESSION
  8. LITHIUM. [Concomitant]
     Active Substance: LITHIUM
     Indication: MOOD ALTERED

REACTIONS (5)
  - Myocardial infarction [Unknown]
  - Dissociation [Unknown]
  - Dizziness [Unknown]
  - Nausea [Unknown]
  - Pneumonia [Unknown]

NARRATIVE: CASE EVENT DATE: 201911
